FAERS Safety Report 4860423-3 (Version None)
Quarter: 2005Q4

REPORT INFORMATION
  Report Type: 
  Country: None (occurrence: None)
  Receive Date: 20051215
  Receipt Date: 20051202
  Transmission Date: 20060501
  Serious: Yes (Hospitalization)
  Sender: FDA-Public Use
  Company Number: GXKR2005US02075

PATIENT
  Age: 16 Year
  Sex: Male

DRUGS (3)
  1. BUPROPION (NGX)(BUPROPION) [Suspect]
     Indication: DEPRESSION
     Dosage: 100 MG, BID,
  2. METHYLPHENIDATE (NGX) (METHYLPHENIDATE) [Suspect]
     Indication: ATTENTION DEFICIT/HYPERACTIVITY DISORDER
     Dosage: 30 MG, BID,
  3. ERYTHROMYCIN [Suspect]
     Indication: ACNE
     Dosage: 999 MG,

REACTIONS (3)
  - ACUTE MYOCARDIAL INFARCTION [None]
  - DRUG INTERACTION [None]
  - RED BLOOD CELL SEDIMENTATION RATE INCREASED [None]
